FAERS Safety Report 7403346-8 (Version None)
Quarter: 2011Q2

REPORT INFORMATION
  Report Type: 
  Country: None (occurrence: None)
  Receive Date: 20110408
  Receipt Date: 20110401
  Transmission Date: 20111010
  Serious: Yes (Hospitalization)
  Sender: FDA-Public Use
  Company Number: A0773218A

PATIENT
  Age: 75 Year
  Sex: Female
  Weight: 80 kg

DRUGS (7)
  1. LEVAQUIN [Concomitant]
  2. AUGMENTIN [Concomitant]
  3. AVANDIA [Suspect]
     Indication: DIABETES MELLITUS
     Dosage: 4MG TWICE PER DAY
     Route: 048
     Dates: start: 20040503, end: 20070201
  4. PREDNISONE [Concomitant]
  5. ALBUTEROL [Concomitant]
  6. GLUCOVANCE [Concomitant]
  7. TRICOR [Concomitant]

REACTIONS (1)
  - MYOCARDIAL INFARCTION [None]
